FAERS Safety Report 9774185 (Version 2)
Quarter: 2013Q4

REPORT INFORMATION
  Report Type: Spontaneous
  Country: US (occurrence: US)
  Receive Date: 20131220
  Receipt Date: 20131231
  Transmission Date: 20140711
  Serious: Yes (Other)
  Sender: FDA-Public Use
  Company Number: US-RB-061233-13

PATIENT
  Age: 65 Year
  Sex: Female

DRUGS (1)
  1. MUCINEX FAST MAX DM LIQUID [Suspect]
     Indication: PRODUCT USED FOR UNKNOWN INDICATION
     Route: 048
     Dates: start: 20131212

REACTIONS (2)
  - Eyelid oedema [Recovered/Resolved]
  - Headache [Not Recovered/Not Resolved]
